FAERS Safety Report 7705619-8 (Version None)
Quarter: 2011Q3

REPORT INFORMATION
  Report Type: 
  Country: None (occurrence: None)
  Receive Date: 20110823
  Receipt Date: 20110823
  Transmission Date: 20111222
  Serious: Yes (Other)
  Sender: FDA-Public Use
  Company Number: None

PATIENT
  Sex: Female
  Weight: 54.4316 kg

DRUGS (2)
  1. HYDROCHLOROTHIAZIDE [Suspect]
     Indication: HYPERTENSION
     Dosage: 12.5MG 1 A DAY
     Dates: start: 20110203, end: 20110616
  2. HYDROCHLOROTHIAZIDE [Suspect]
     Indication: HYPERTENSION
     Dosage: 25MG 1 A DAY
     Dates: start: 20110616, end: 20110714

REACTIONS (2)
  - LEUKOCYTOCLASTIC VASCULITIS [None]
  - PRODUCT SUBSTITUTION ISSUE [None]
